FAERS Safety Report 9294618 (Version 1)
Quarter: 2013Q2

REPORT INFORMATION
  Report Type: Spontaneous
  Country: US (occurrence: US)
  Receive Date: 20130517
  Receipt Date: 20130517
  Transmission Date: 20140414
  Serious: No
  Sender: FDA-Public Use
  Company Number: US-PFIZER INC-2013148614

PATIENT
  Age: 64 Year
  Sex: Female
  Weight: 72.56 kg

DRUGS (6)
  1. LYRICA [Suspect]
     Indication: FIBROMYALGIA
     Dosage: 150 MG, 1X/DAY
     Route: 048
     Dates: end: 2012
  2. CYMBALTA [Concomitant]
     Dosage: UNK
  3. METOPROLOL [Concomitant]
     Dosage: UNK
  4. SIMVASTATIN [Concomitant]
     Dosage: UNK
  5. DITROPAN [Concomitant]
     Dosage: UNK
  6. OMEPRAZOLE [Concomitant]
     Dosage: UNK

REACTIONS (4)
  - Pain [Unknown]
  - Arthralgia [Unknown]
  - Body height decreased [Unknown]
  - Feeling abnormal [Unknown]
